FAERS Safety Report 17888356 (Version 1)
Quarter: 2020Q2

REPORT INFORMATION
  Report Type: Spontaneous
  Country: CA (occurrence: CA)
  Receive Date: 20200612
  Receipt Date: 20200612
  Transmission Date: 20200714
  Serious: Yes (Other)
  Sender: FDA-Public Use
  Company Number: CA-BAXTER-2020BAX011900

PATIENT
  Age: 49 Year
  Sex: Female

DRUGS (22)
  1. VITAMIN D3 [Concomitant]
     Active Substance: CHOLECALCIFEROL
     Indication: PRODUCT USED FOR UNKNOWN INDICATION
     Route: 065
  2. PROCYTOX (CYCLOPHOSPHAMIDE) 2000MG/VIAL [Suspect]
     Active Substance: CYCLOPHOSPHAMIDE
     Indication: BREAST CANCER
     Dosage: DOSAGE FORM: NOT SPECIFIED
     Route: 065
  3. FLUOROURACIL. [Suspect]
     Active Substance: FLUOROURACIL
     Indication: BREAST CANCER
     Dosage: DOSAGE FORM: NOT SPECIFIED
     Route: 065
  4. FLUOROURACIL. [Suspect]
     Active Substance: FLUOROURACIL
     Dosage: DOSAGE FORM: NOT SPECIFIED
     Route: 065
  5. CALCIUM [Concomitant]
     Active Substance: CALCIUM
     Indication: PRODUCT USED FOR UNKNOWN INDICATION
     Dosage: DOSAGE FORM: NOT SPECIFIED
  6. DENOSUMAB [Concomitant]
     Active Substance: DENOSUMAB
     Indication: PRODUCT USED FOR UNKNOWN INDICATION
     Dosage: DOSAGE FORM: SOLUTION SUBCUTANEOUS
     Route: 065
  7. DENOSUMAB [Concomitant]
     Active Substance: DENOSUMAB
     Dosage: DOSAGE FORM: SOLUTION SUBCUTANEOUS
     Route: 065
  8. EPIRUBICIN HYDROCHLORIDE. [Suspect]
     Active Substance: EPIRUBICIN HYDROCHLORIDE
     Indication: BREAST CANCER
     Dosage: DOSAGE FORM: SOLUTION INTRAVENOUS
     Route: 065
  9. CITALOPRAM [Concomitant]
     Active Substance: CITALOPRAM HYDROBROMIDE
     Indication: PRODUCT USED FOR UNKNOWN INDICATION
     Route: 065
  10. TAMOXIFEN [Concomitant]
     Active Substance: TAMOXIFEN
     Indication: PRODUCT USED FOR UNKNOWN INDICATION
     Dosage: DOSAGE FORM: TABLETS
     Route: 065
  11. XGEVA [Concomitant]
     Active Substance: DENOSUMAB
     Indication: PROPHYLAXIS
     Dosage: SINGLE-USE VIAL. FOR S.C. USE ONLY. PRESERVATIVE-FREE, DOSAGE FORM: SOLUTION SUBCUTANEOUS
     Route: 058
  12. DENOSUMAB [Concomitant]
     Active Substance: DENOSUMAB
     Dosage: DOSAGE FORM: SOLUTION SUBCUTANEOUS
     Route: 065
  13. TAMOXIFEN [Concomitant]
     Active Substance: TAMOXIFEN
     Indication: BREAST CANCER
     Dosage: DOSAGE FORM: TABLETS, DURATION: 731.0
     Route: 065
  14. PROCYTOX (CYCLOPHOSPHAMIDE) 2000MG/VIAL [Suspect]
     Active Substance: CYCLOPHOSPHAMIDE
     Dosage: DOSAGE FORM: NOT SPECIFIED
     Route: 065
  15. EPIRUBICIN HYDROCHLORIDE. [Suspect]
     Active Substance: EPIRUBICIN HYDROCHLORIDE
     Route: 065
  16. PMS-EPIRUBICIN [Suspect]
     Active Substance: EPIRUBICIN HYDROCHLORIDE
     Indication: BREAST CANCER
     Dosage: DOSAGE FORM: SOLUTION INTRAVENOUS
     Route: 065
  17. XGEVA [Concomitant]
     Active Substance: DENOSUMAB
     Dosage: SINGLE-USE VIAL. FOR S.C. USE ONLY. PRESERVATIVE-FREE, DOSAGE FORM: SOLUTION SUBCUTANEOUS
     Route: 058
  18. DOCETAXEL. [Suspect]
     Active Substance: DOCETAXEL
     Indication: BREAST CANCER
     Dosage: DOSAGE FORM: SOLUTION INTRAVENOUS
     Route: 065
  19. DOCETAXEL. [Suspect]
     Active Substance: DOCETAXEL
     Dosage: DOSAGE FORM: SOLUTION INTRAVENOUS
     Route: 065
  20. EFUDEX [Suspect]
     Active Substance: FLUOROURACIL
     Indication: BREAST CANCER
     Route: 065
  21. XGEVA [Concomitant]
     Active Substance: DENOSUMAB
     Indication: BREAST CANCER
     Dosage: SINGLE-USE VIAL. FOR S.C. USE ONLY. PRESERVATIVE-FREE
     Route: 058
  22. XGEVA [Concomitant]
     Active Substance: DENOSUMAB
     Dosage: SINGLE-USE VIAL. FOR S.C. USE ONLY. PRESERVATIVE-FREE
     Route: 058

REACTIONS (1)
  - Menopause [Unknown]
